FAERS Safety Report 26045800 (Version 1)
Quarter: 2025Q4

REPORT INFORMATION
  Report Type: Spontaneous
  Country: US (occurrence: None)
  Receive Date: 20251113
  Receipt Date: 20251113
  Transmission Date: 20260117
  Serious: No
  Sender: FDA-CTU
  Company Number: None

PATIENT
  Age: 50 Year
  Sex: Male

DRUGS (1)
  1. BIMZELX [Suspect]
     Active Substance: BIMEKIZUMAB-BKZX
     Indication: Hidradenitis
     Dosage: OTHER FREQUENCY : EVERY OTHER WEEK FOR 16 WEEKS THEN EVERY 4 WEEKS;?
     Route: 058

REACTIONS (3)
  - Hidradenitis [None]
  - Condition aggravated [None]
  - Injection site discharge [None]
